FAERS Safety Report 6070358-9 (Version None)
Quarter: 2009Q1

REPORT INFORMATION
  Report Type: 
  Country: None (occurrence: None)
  Receive Date: 20090209
  Receipt Date: 20090202
  Transmission Date: 20090719
  Serious: Yes (Other)
  Sender: FDA-Public Use
  Company Number: US-ELI_LILLY_AND_COMPANY-US200901001763

PATIENT
  Sex: Male
  Weight: 83.81 kg

DRUGS (8)
  1. HUMALOG [Suspect]
     Dosage: UNK, AS NEEDED
     Dates: start: 20060101
  2. HUMULIN N [Suspect]
  3. HUMULIN R [Suspect]
  4. HUMULIN U [Suspect]
  5. HUMULIN L [Suspect]
  6. ILETIN [Suspect]
  7. LANTUS [Concomitant]
     Dosage: 23 U, DAILY (1/D)
  8. LEVOTHYROXINE SODIUM [Concomitant]
     Dosage: 0.112 MG, DAILY (1/D)

REACTIONS (11)
  - ANGER [None]
  - BLINDNESS [None]
  - BLOOD GLUCOSE INCREASED [None]
  - CATARACT [None]
  - DEPRESSION [None]
  - FEELING ABNORMAL [None]
  - POSTERIOR CAPSULOTOMY [None]
  - RETINAL ISCHAEMIA [None]
  - STRESS [None]
  - VISION BLURRED [None]
  - VISUAL ACUITY REDUCED [None]
